FAERS Safety Report 24625805 (Version 1)
Quarter: 2024Q4

REPORT INFORMATION
  Report Type: Spontaneous
  Country: US (occurrence: US)
  Receive Date: 20241115
  Receipt Date: 20241115
  Transmission Date: 20250114
  Serious: No
  Sender: ANI
  Company Number: US-ANIPHARMA-2024-US-048657

PATIENT
  Age: 73 Year
  Sex: Male

DRUGS (1)
  1. CORTICOTROPIN [Suspect]
     Active Substance: CORTICOTROPIN
     Indication: Rheumatoid arthritis
     Dosage: 80U/ML EVERY OTHER DAY UNDER THE SKIN
     Route: 058
     Dates: start: 202405

REACTIONS (2)
  - Nausea [Not Recovered/Not Resolved]
  - Adverse drug reaction [Unknown]

NARRATIVE: CASE EVENT DATE: 20240906
